FAERS Safety Report 16279366 (Version 3)
Quarter: 2019Q4

REPORT INFORMATION
  Report Type: Report from Study
  Country: None (occurrence: CO)
  Receive Date: 20190507
  Receipt Date: 20191030
  Transmission Date: 20200122
  Serious: Yes (Hospitalization, Other)
  Sender: FDA-Public Use
  Company Number: CO-ABBVIE-18K-036-2395312-00

PATIENT
  Age: 66 Year
  Sex: Male
  Weight: 70 kg

DRUGS (3)
  1. HUMIRA [Suspect]
     Active Substance: ADALIMUMAB
     Indication: PSORIASIS
     Route: 058
     Dates: start: 20120816, end: 20180505
  2. INSULINE [Concomitant]
     Active Substance: INSULIN NOS
     Indication: PRODUCT USED FOR UNKNOWN INDICATION
  3. METFORMIN [Concomitant]
     Active Substance: METFORMIN HYDROCHLORIDE
     Indication: PRODUCT USED FOR UNKNOWN INDICATION

REACTIONS (10)
  - Postoperative wound infection [Unknown]
  - Peripheral nerve injury [Unknown]
  - Road traffic accident [Unknown]
  - Upper limb fracture [Recovering/Resolving]
  - Pain in extremity [Unknown]
  - Pruritus [Unknown]
  - Blood glucose increased [Unknown]
  - Post procedural discharge [Unknown]
  - Erythema [Unknown]
  - Fistula [Recovering/Resolving]

NARRATIVE: CASE EVENT DATE: 20180528
